FAERS Safety Report 12923578 (Version 1)
Quarter: 2016Q4

REPORT INFORMATION
  Report Type: Spontaneous
  Country: JP (occurrence: JP)
  Receive Date: 20161108
  Receipt Date: 20161108
  Transmission Date: 20170207
  Serious: Yes (Other)
  Sender: FDA-Public Use
  Company Number: JP-PFIZER INC-2016516855

PATIENT
  Age: 5 Year
  Sex: Female

DRUGS (1)
  1. GENOTROPIN TC 5.3MG [Suspect]
     Active Substance: SOMATROPIN
     Dosage: 3.2 MG, WEEKLY(0.4 MG FROM MON TO WED AND 0.5 MG FROM THU TO SUN)
     Dates: start: 201412, end: 20161106

REACTIONS (1)
  - Epilepsy [Unknown]

NARRATIVE: CASE EVENT DATE: 201609
